FAERS Safety Report 7298783-9 (Version None)
Quarter: 2011Q1

REPORT INFORMATION
  Report Type: 
  Country: None (occurrence: None)
  Receive Date: 20110217
  Receipt Date: 20110208
  Transmission Date: 20110831
  Serious: Yes (Life-Threatening)
  Sender: FDA-Public Use
  Company Number: FR-ROCHE-749879

PATIENT
  Sex: Female
  Weight: 68 kg

DRUGS (4)
  1. PACLITAXEL [Concomitant]
     Indication: BREAST CANCER
     Route: 042
     Dates: start: 20090806, end: 20100114
  2. NISISCO [Concomitant]
     Indication: BREAST CANCER
     Route: 048
  3. TAMOXIFEN [Concomitant]
     Indication: BREAST CANCER
     Route: 048
  4. AVASTIN [Suspect]
     Indication: BREAST CANCER
     Route: 042
     Dates: start: 20091101, end: 20101125

REACTIONS (1)
  - CARDIAC DISORDER [None]
